FAERS Safety Report 10812269 (Version 1)
Quarter: 2015Q1

REPORT INFORMATION
  Report Type: Spontaneous
  Country: US (occurrence: None)
  Receive Date: 20150212
  Receipt Date: 20150212
  Transmission Date: 20150721
  Serious: Yes (Disabling, Other)
  Sender: FDA-Public Use
  Company Number: None

PATIENT
  Age: 62 Year
  Sex: Female
  Weight: 86.18 kg

DRUGS (6)
  1. AMLODIPINE [Suspect]
     Active Substance: AMLODIPINE BESYLATE
     Indication: HYPERTENSION
     Dosage: 1-PILL
     Route: 048
     Dates: start: 20150129, end: 20150208
  2. COMPLETE 50-PLUS MULTIVITAMIN-MULTIMINERAL SUPPLEMENT [Concomitant]
  3. SERTRALINE 50MG [Suspect]
     Active Substance: SERTRALINE HYDROCHLORIDE
     Indication: POST-TRAUMATIC STRESS DISORDER
     Dosage: 50MGS. FOR 2-WKS. THEN 100MGS
     Route: 048
     Dates: start: 20150129, end: 20150208
  4. VITAMIN-D3 [Concomitant]
  5. SERTRALINE 50MG [Suspect]
     Active Substance: SERTRALINE HYDROCHLORIDE
     Indication: DEPRESSION
     Dosage: 50MGS. FOR 2-WKS. THEN 100MGS
     Route: 048
     Dates: start: 20150129, end: 20150208
  6. SERTRALINE 50MG [Suspect]
     Active Substance: SERTRALINE HYDROCHLORIDE
     Indication: BIPOLAR DISORDER
     Dosage: 50MGS. FOR 2-WKS. THEN 100MGS
     Route: 048
     Dates: start: 20150129, end: 20150208

REACTIONS (11)
  - Pain in extremity [None]
  - Hyperhidrosis [None]
  - Discomfort [None]
  - Musculoskeletal pain [None]
  - Fatigue [None]
  - Chills [None]
  - Asthenia [None]
  - Joint range of motion decreased [None]
  - Pain [None]
  - Back pain [None]
  - Nausea [None]
